FAERS Safety Report 5078929-3 (Version None)
Quarter: 2006Q3

REPORT INFORMATION
  Report Type: 
  Country: None (occurrence: None)
  Receive Date: 20060814
  Receipt Date: 20060801
  Transmission Date: 20061208
  Serious: Yes (Other)
  Sender: FDA-Public Use
  Company Number: PHBS2006JP11619

PATIENT
  Sex: Female

DRUGS (3)
  1. AREDIA [Suspect]
     Indication: METASTASES TO BONE
     Dosage: 90 MG/DAY
     Route: 042
     Dates: start: 20051001, end: 20060601
  2. ZOMETA [Suspect]
     Dosage: 4 MG/DAY
     Route: 042
     Dates: start: 20060601
  3. BISPHONAL [Suspect]
     Dosage: 10 MG/DAY
     Route: 042
     Dates: start: 20050101, end: 20051001

REACTIONS (2)
  - OSTEOMYELITIS [None]
  - TOOTH EXTRACTION [None]
